FAERS Safety Report 9770401 (Version 2)
Quarter: 2014Q1

REPORT INFORMATION
  Report Type: Spontaneous
  Country: US (occurrence: US)
  Receive Date: 20131218
  Receipt Date: 20140128
  Transmission Date: 20141002
  Serious: Yes (Hospitalization)
  Sender: FDA-Public Use
  Company Number: US-SA-2013SA131578

PATIENT
  Age: 70 Year
  Sex: Female

DRUGS (3)
  1. AVAPRO [Suspect]
     Indication: BLOOD PRESSURE
     Route: 048
  2. ANTIHYPERTENSIVES [Suspect]
     Indication: BLOOD PRESSURE
     Route: 065
  3. LIPITOR [Concomitant]

REACTIONS (1)
  - Hyponatraemia [Unknown]
